FAERS Safety Report 8233278 (Version 2)
Quarter: 2012Q4

REPORT INFORMATION
  Report Type: 
  Country: US (occurrence: US)
  Receive Date: 20111107
  Receipt Date: 20121115
  Transmission Date: 20130627
  Serious: Yes (Other)
  Sender: FDA-Public Use
  Company Number: US-PFIZER INC-2011268668

PATIENT
  Age: 21 Year
  Sex: Female
  Weight: 68.03 kg

DRUGS (2)
  1. ZOLOFT [Suspect]
     Indication: DEPRESSION
     Dosage: 150 mg, daily
     Route: 048
     Dates: start: 200904, end: 20091116
  2. ZOLOFT [Suspect]
     Indication: NERVOUS SYSTEM DISORDER

REACTIONS (5)
  - Loss of consciousness [Not Recovered/Not Resolved]
  - Depression [Not Recovered/Not Resolved]
  - Emotional disorder [Not Recovered/Not Resolved]
  - Personality change [Not Recovered/Not Resolved]
  - Insomnia [Not Recovered/Not Resolved]
